FAERS Safety Report 20862158 (Version 2)
Quarter: 2022Q4

REPORT INFORMATION
  Report Type: Report from Study
  Country: JP (occurrence: JP)
  Receive Date: 20220523
  Receipt Date: 20221110
  Transmission Date: 20230113
  Serious: Yes (Hospitalization)
  Sender: FDA-Public Use
  Company Number: JP-JNJFOC-20201142290

PATIENT
  Age: 70 Year
  Sex: Male

DRUGS (8)
  1. ZYTIGA [Suspect]
     Active Substance: ABIRATERONE ACETATE
     Indication: Prostate cancer metastatic
     Route: 048
     Dates: start: 20200402, end: 20201102
  2. ERLEADA [Suspect]
     Active Substance: APALUTAMIDE
     Indication: Prostate cancer metastatic
     Route: 048
     Dates: start: 20210201, end: 20210528
  3. ERLEADA [Suspect]
     Active Substance: APALUTAMIDE
     Route: 048
     Dates: start: 20210625
  4. PREDONINE [Suspect]
     Active Substance: PREDNISOLONE
     Indication: Prostate cancer metastatic
     Route: 048
     Dates: start: 20200402, end: 20201101
  5. PREDONINE [Suspect]
     Active Substance: PREDNISOLONE
     Indication: Prostate cancer metastatic
     Route: 048
     Dates: start: 20201102, end: 20201117
  6. PREDONINE [Suspect]
     Active Substance: PREDNISOLONE
     Indication: Prostate cancer metastatic
     Dosage: AFTER BREAKFAST
     Route: 048
     Dates: start: 20201118, end: 20201204
  7. DEGARELIX [Concomitant]
     Active Substance: DEGARELIX
     Indication: Prostate cancer metastatic
     Dosage: DOSE UNKNOWN
     Route: 065
     Dates: start: 20200302, end: 20201102
  8. DEGARELIX [Concomitant]
     Active Substance: DEGARELIX
     Indication: Prostate cancer metastatic
     Route: 065
     Dates: start: 20201204

REACTIONS (2)
  - Drug-induced liver injury [Recovered/Resolved]
  - Rash [Recovered/Resolved]

NARRATIVE: CASE EVENT DATE: 20201102
